FAERS Safety Report 5392041-5 (Version None)
Quarter: 2007Q3

REPORT INFORMATION
  Report Type: 
  Country: None (occurrence: None)
  Receive Date: 20070718
  Receipt Date: 20070718
  Transmission Date: 20080115
  Serious: No
  Sender: FDA-Public Use
  Company Number: None

PATIENT
  Sex: Female

DRUGS (5)
  1. PROPOXYPHENE NAPSYLATE AND ACETAMINOPHEN [Suspect]
     Indication: PAIN
     Dosage: 1-2 PO Q 4-6H P.R.N.
     Route: 048
     Dates: start: 20060701, end: 20070401
  2. SOMA [Concomitant]
  3. IBUPROFEN [Concomitant]
  4. PREMARIN [Concomitant]
  5. NEXIUM [Concomitant]

REACTIONS (5)
  - ANXIETY [None]
  - FEELING ABNORMAL [None]
  - GAIT DISTURBANCE [None]
  - HYPERHIDROSIS [None]
  - TREMOR [None]
